FAERS Safety Report 15868220 (Version 2)
Quarter: 2019Q1

REPORT INFORMATION
  Report Type: Spontaneous
  Country: US (occurrence: US)
  Receive Date: 20190125
  Receipt Date: 20190315
  Transmission Date: 20190417
  Serious: No
  Sender: FDA-Public Use
  Company Number: US-TEVA-2019-US-994475

PATIENT
  Sex: Female

DRUGS (1)
  1. PROAIR HFA [Suspect]
     Active Substance: ALBUTEROL SULFATE
     Indication: VIRAL UPPER RESPIRATORY TRACT INFECTION
     Dosage: 2 PUFFS EVERY 4 HOURS
     Dates: start: 20181212

REACTIONS (9)
  - Dizziness [Recovered/Resolved]
  - Product prescribing error [Unknown]
  - Abdominal discomfort [Recovered/Resolved]
  - Weight decreased [Unknown]
  - Product communication issue [Unknown]
  - Decreased appetite [Not Recovered/Not Resolved]
  - Product use in unapproved indication [Unknown]
  - Wrong technique in product usage process [Unknown]
  - Incorrect dose administered [Unknown]
